FAERS Safety Report 16704891 (Version 3)
Quarter: 2020Q1

REPORT INFORMATION
  Report Type: Spontaneous
  Country: US (occurrence: US)
  Receive Date: 20190814
  Receipt Date: 20200114
  Transmission Date: 20200409
  Serious: Yes (Other)
  Sender: FDA-Public Use
  Company Number: US-ASTRAZENECA-2019SF13519

PATIENT
  Age: 19405 Day
  Sex: Male

DRUGS (62)
  1. PROTONIX [Suspect]
     Active Substance: PANTOPRAZOLE SODIUM
     Indication: GASTROOESOPHAGEAL REFLUX DISEASE
     Route: 065
     Dates: start: 2005, end: 2017
  2. PROTONIX [Suspect]
     Active Substance: PANTOPRAZOLE SODIUM
     Indication: GASTROOESOPHAGEAL REFLUX DISEASE
     Dosage: GENERIC- DELAYED RELEASE
     Route: 048
  3. ONGLYZA [Concomitant]
     Active Substance: SAXAGLIPTIN HYDROCHLORIDE
     Dates: start: 20100629
  4. CELEBREX [Concomitant]
     Active Substance: CELECOXIB
     Indication: PAIN
     Dosage: UNKNOWN
     Dates: start: 2010
  5. SOMA [Concomitant]
     Active Substance: CARISOPRODOL
     Dosage: 250.0MG UNKNOWN
     Dates: start: 20100629
  6. GABAPENTIN. [Concomitant]
     Active Substance: GABAPENTIN
     Indication: PAIN
     Dosage: 300.0MG UNKNOWN
     Dates: start: 20100629
  7. CIPROFLOXACIN. [Concomitant]
     Active Substance: CIPROFLOXACIN
     Dates: start: 20120422
  8. HEPARIN [Concomitant]
     Active Substance: HEPARIN SODIUM
  9. MORPHINE [Concomitant]
     Active Substance: MORPHINE
  10. PRILOSEC [Suspect]
     Active Substance: OMEPRAZOLE MAGNESIUM
     Indication: GASTROOESOPHAGEAL REFLUX DISEASE
     Dosage: GENERIC20.0MG UNKNOWN
     Route: 065
     Dates: start: 20100706
  11. PROTONIX [Suspect]
     Active Substance: PANTOPRAZOLE SODIUM
     Indication: GASTROOESOPHAGEAL REFLUX DISEASE
     Route: 065
     Dates: start: 2017, end: 2019
  12. HYDROCODONE-APAP [Concomitant]
     Active Substance: ACETAMINOPHEN\HYDROCODONE
     Indication: PAIN
     Dates: start: 2010, end: 2013
  13. SINGULAIR [Concomitant]
     Active Substance: MONTELUKAST SODIUM
     Dosage: 10.0MG UNKNOWN
     Dates: start: 20111115
  14. METHYLPREDNISOLONE. [Concomitant]
     Active Substance: METHYLPREDNISOLONE
     Dates: start: 20130328
  15. TRAMADOL. [Concomitant]
     Active Substance: TRAMADOL
     Indication: PAIN
     Dosage: 50.0MG UNKNOWN
     Dates: start: 20100629
  16. CLONAZEPAM. [Concomitant]
     Active Substance: CLONAZEPAM
     Dosage: 0.5MG UNKNOWN
     Dates: start: 20110513
  17. ACYCLOVIR. [Concomitant]
     Active Substance: ACYCLOVIR
     Dates: start: 20141230
  18. TAMSULOSIN [Concomitant]
     Active Substance: TAMSULOSIN
     Dates: start: 20150626
  19. ASPIRIN. [Concomitant]
     Active Substance: ASPIRIN
  20. CARISOPRODOL. [Concomitant]
     Active Substance: CARISOPRODOL
     Indication: PAIN
     Dates: start: 2011, end: 2016
  21. RANITIDINE. [Concomitant]
     Active Substance: RANITIDINE
  22. PRILOSEC [Suspect]
     Active Substance: OMEPRAZOLE MAGNESIUM
     Indication: GASTROOESOPHAGEAL REFLUX DISEASE
     Dosage: GENERIC UNKNOWN
     Route: 065
     Dates: start: 2010, end: 2017
  23. AMOXICILLIN. [Concomitant]
     Active Substance: AMOXICILLIN
     Dosage: 500.0MG UNKNOWN
     Dates: start: 20100204
  24. METFORMIN HCL [Concomitant]
     Active Substance: METFORMIN HYDROCHLORIDE
     Dosage: 500.0MG UNKNOWN
     Dates: start: 20100204
  25. VENTOLIN [Concomitant]
     Active Substance: ALBUTEROL SULFATE
     Dosage: 90 MCG INAHLER
     Dates: start: 20110708
  26. PREDNISONE. [Concomitant]
     Active Substance: PREDNISONE
     Dosage: 10.0MG UNKNOWN
     Dates: start: 20111115
  27. INVOKANA [Concomitant]
     Active Substance: CANAGLIFLOZIN
     Dates: start: 20140518
  28. TRAMADOL. [Concomitant]
     Active Substance: TRAMADOL
     Indication: PAIN
     Dosage: UNKNOWN
     Dates: start: 2010
  29. GABAPENTIN. [Concomitant]
     Active Substance: GABAPENTIN
     Indication: PAIN
     Dosage: UNKNOWN
     Dates: start: 2010
  30. PROVENTIL [Concomitant]
     Active Substance: ALBUTEROL
     Dosage: 90 MCG INHALER
     Dates: start: 20110512
  31. SULFAMETHOXAZOLE [Concomitant]
     Active Substance: SULFAMETHOXAZOLE
     Dates: start: 20120210
  32. FAMCICLOVIR. [Concomitant]
     Active Substance: FAMCICLOVIR
     Dates: start: 20120422
  33. CAPTOPRIL. [Concomitant]
     Active Substance: CAPTOPRIL
     Dosage: 5-325
     Dates: start: 20141229
  34. FLOMAX [Concomitant]
     Active Substance: TAMSULOSIN HYDROCHLORIDE
  35. PENNSAID [Concomitant]
     Active Substance: DICLOFENAC SODIUM
  36. CRESTOR [Concomitant]
     Active Substance: ROSUVASTATIN CALCIUM
  37. OXYCODONE-ACETAMINOPHEN [Concomitant]
     Active Substance: ACETAMINOPHEN\OXYCODONE HYDROCHLORIDE
     Indication: PAIN
     Dates: start: 20190530
  38. OXYCODONE-ACETAMINOPHEN [Concomitant]
     Active Substance: ACETAMINOPHEN\OXYCODONE HYDROCHLORIDE
     Indication: PAIN
     Dates: start: 2010
  39. CELEBREX [Concomitant]
     Active Substance: CELECOXIB
     Indication: PAIN
     Dosage: 200.0MG UNKNOWN
     Dates: start: 20100629
  40. AMITRIPTYLINE [Concomitant]
     Active Substance: AMITRIPTYLINE
     Dosage: 25.0MG UNKNOWN
     Dates: start: 20100629
  41. CYMBALTA [Concomitant]
     Active Substance: DULOXETINE HYDROCHLORIDE
     Dosage: 30.0MG UNKNOWN
     Dates: start: 20100910
  42. PENICILLIN [Concomitant]
     Active Substance: PENICILLIN
     Dosage: 250.0MG UNKNOWN
     Dates: start: 20101226
  43. RANITIDINE. [Concomitant]
     Active Substance: RANITIDINE
     Dates: start: 20110414
  44. IBUPROFEN. [Concomitant]
     Active Substance: IBUPROFEN
     Dosage: 800.0MG UNKNOWN
     Dates: start: 20110529
  45. AMOX TR-K [Concomitant]
     Dosage: 875-125 MG
     Dates: start: 20111115
  46. LEVOFLOXACIN. [Concomitant]
     Active Substance: LEVOFLOXACIN
     Dates: start: 20130328
  47. KETOROLAC [Concomitant]
     Active Substance: KETOROLAC TROMETHAMINE
     Dates: start: 20130909
  48. MONTELUKAST SODIUM. [Concomitant]
     Active Substance: MONTELUKAST SODIUM
     Indication: HYPERSENSITIVITY
     Dates: start: 2013
  49. CLONAZEPAM. [Concomitant]
     Active Substance: CLONAZEPAM
     Indication: ANXIETY
     Dates: start: 2014
  50. PROTONIX [Suspect]
     Active Substance: PANTOPRAZOLE SODIUM
     Indication: GASTROOESOPHAGEAL REFLUX DISEASE
     Route: 065
  51. OXYCODONE HYDROCHLORIDE. [Concomitant]
     Active Substance: OXYCODONE HYDROCHLORIDE
     Dosage: 5.0MG UNKNOWN
     Dates: start: 20100128
  52. HYDROCODONE-APAP [Concomitant]
     Active Substance: ACETAMINOPHEN\HYDROCODONE
     Indication: PAIN
     Dosage: 5-500
     Dates: start: 20100526
  53. DULOXETINE. [Concomitant]
     Active Substance: DULOXETINE
     Indication: DEPRESSION
     Dates: start: 20140131
  54. DIAZEPAM. [Concomitant]
     Active Substance: DIAZEPAM
     Dates: start: 20150518
  55. JANUVIA [Concomitant]
     Active Substance: SITAGLIPTIN PHOSPHATE
  56. ZOFRAN [Concomitant]
     Active Substance: ONDANSETRON HYDROCHLORIDE
  57. PRILOSEC [Suspect]
     Active Substance: OMEPRAZOLE MAGNESIUM
     Indication: GASTROOESOPHAGEAL REFLUX DISEASE
     Route: 048
     Dates: start: 2005, end: 2017
  58. PRILOSEC [Suspect]
     Active Substance: OMEPRAZOLE MAGNESIUM
     Indication: GASTROOESOPHAGEAL REFLUX DISEASE
     Dosage: GENERIC20.0MG UNKNOWN
     Route: 065
     Dates: start: 20160511
  59. ATENOLOL. [Concomitant]
     Active Substance: ATENOLOL
     Dosage: 50-25
     Dates: start: 20110114
  60. CHANTIX [Concomitant]
     Active Substance: VARENICLINE TARTRATE
     Dates: start: 20110114
  61. MELOXICAM. [Concomitant]
     Active Substance: MELOXICAM
     Dates: start: 20110512
  62. DULOXETINE. [Concomitant]
     Active Substance: DULOXETINE
     Indication: DEPRESSION
     Dates: start: 2014

REACTIONS (4)
  - Renal failure [Unknown]
  - Chronic kidney disease [Not Recovered/Not Resolved]
  - Acute kidney injury [Not Recovered/Not Resolved]
  - Renal injury [Unknown]

NARRATIVE: CASE EVENT DATE: 20160831
